FAERS Safety Report 25350118 (Version 3)
Quarter: 2025Q2

REPORT INFORMATION
  Report Type: Spontaneous
  Country: BE (occurrence: BE)
  Receive Date: 20250523
  Receipt Date: 20250623
  Transmission Date: 20250716
  Serious: Yes (Other)
  Sender: RANBAXY
  Company Number: BE-SUN PHARMACEUTICAL INDUSTRIES LTD-2025R1-507659

PATIENT
  Sex: Male

DRUGS (8)
  1. AZITHROMYCIN [Suspect]
     Active Substance: AZITHROMYCIN
     Indication: Mycoplasma genitalium infection
     Route: 065
  2. CHLORAMPHENICOL [Suspect]
     Active Substance: CHLORAMPHENICOL
     Indication: Mycoplasma genitalium infection
     Route: 065
  3. DOXYCYCLINE [Suspect]
     Active Substance: DOXYCYCLINE
     Indication: Urethritis
     Dosage: 100 MILLIGRAM, DAILY
     Route: 065
  4. METRONIDAZOLE [Suspect]
     Active Substance: METRONIDAZOLE
     Indication: Urethritis
     Route: 065
  5. MINOCYCLINE [Suspect]
     Active Substance: MINOCYCLINE HYDROCHLORIDE
     Indication: Urethritis
     Route: 065
  6. MOXIFLOXACIN [Suspect]
     Active Substance: MOXIFLOXACIN
     Indication: Mycoplasma genitalium infection
     Route: 065
  7. METHENAMINE [Suspect]
     Active Substance: METHENAMINE
     Indication: Urethritis
     Route: 065
  8. PRISTINAMYCIN [Suspect]
     Active Substance: PRISTINAMYCIN
     Indication: Urethritis
     Route: 065

REACTIONS (2)
  - Drug resistance [Unknown]
  - Pollakiuria [Unknown]
